FAERS Safety Report 6217872-0 (Version None)
Quarter: 2009Q2

REPORT INFORMATION
  Report Type: 
  Country: None (occurrence: None)
  Receive Date: 20090608
  Receipt Date: 20090529
  Transmission Date: 20091009
  Serious: Yes (Hospitalization)
  Sender: FDA-Public Use
  Company Number: US-ROCHE-581924

PATIENT
  Sex: Female
  Weight: 66.2 kg

DRUGS (3)
  1. CAPECITABINE [Suspect]
     Indication: BREAST CANCER
     Route: 048
     Dates: start: 20080507
  2. CAPECITABINE [Suspect]
     Dosage: FORM: PILL, 4 PILLS (2000 MG) IN THE MORNING AND3 PILLS (1500) IN THE EVENING
     Route: 048
     Dates: start: 20090507, end: 20090519
  3. MORPHINE [Suspect]
     Indication: PAIN
     Route: 065

REACTIONS (4)
  - BRONCHITIS [None]
  - FAECALOMA [None]
  - LOSS OF CONSCIOUSNESS [None]
  - SINUS BRADYCARDIA [None]
